FAERS Safety Report 19168711 (Version 1)
Quarter: 2021Q2

REPORT INFORMATION
  Report Type: Spontaneous
  Country: US (occurrence: US)
  Receive Date: 20210422
  Receipt Date: 20210422
  Transmission Date: 20210717
  Serious: No
  Sender: FDA-Public Use
  Company Number: US-TEVA-2021-US-1899111

PATIENT
  Age: 47 Year
  Sex: Female

DRUGS (1)
  1. AJOVY [Suspect]
     Active Substance: FREMANEZUMAB-VFRM
     Dosage: 225 MG / 1.5 ML
     Route: 065
     Dates: start: 20210401

REACTIONS (4)
  - Needle issue [Unknown]
  - Accidental exposure to product [Unknown]
  - Drug dose omission by device [Unknown]
  - Injection site extravasation [Unknown]

NARRATIVE: CASE EVENT DATE: 202104
